FAERS Safety Report 7597663-9 (Version None)
Quarter: 2011Q3

REPORT INFORMATION
  Report Type: 
  Country: None (occurrence: None)
  Receive Date: 20110708
  Receipt Date: 20110705
  Transmission Date: 20111222
  Serious: Yes (Death, Life-Threatening, Hospitalization)
  Sender: FDA-Public Use
  Company Number: RO-ABBOTT-11P-135-0836232-00

PATIENT
  Sex: Female
  Weight: 80 kg

DRUGS (4)
  1. CORTICOSTEROIDS [Concomitant]
     Indication: RHEUMATOID ARTHRITIS
     Route: 048
     Dates: start: 19900101
  2. METHOTREXATE [Concomitant]
     Indication: RHEUMATOID ARTHRITIS
     Dosage: 10 MG/WEEK
     Route: 030
     Dates: start: 20100125
  3. HUMIRA [Suspect]
     Indication: RHEUMATOID ARTHRITIS
     Route: 058
     Dates: start: 20100125
  4. LEFLUNOMIDE [Concomitant]
     Indication: RHEUMATOID ARTHRITIS
     Route: 048
     Dates: start: 20100125

REACTIONS (6)
  - EMBOLISM [None]
  - HEMIPARESIS [None]
  - CARDIO-RESPIRATORY ARREST [None]
  - CERVICAL VERTEBRAL FRACTURE [None]
  - MULTI-ORGAN FAILURE [None]
  - DISORIENTATION [None]
